FAERS Safety Report 4899974-4 (Version None)
Quarter: 2006Q1

REPORT INFORMATION
  Report Type: 
  Country: None (occurrence: None)
  Receive Date: 20060131
  Receipt Date: 20060119
  Transmission Date: 20060701
  Serious: Yes (Other)
  Sender: FDA-Public Use
  Company Number: 2006010210

PATIENT
  Age: 41 Year
  Sex: Female
  Weight: 90.7194 kg

DRUGS (3)
  1. DETROL LA [Suspect]
     Indication: HYPERTONIC BLADDER
     Dosage: 4 MG (4 MG, 1 IN 1 D), ORAL
     Route: 048
     Dates: start: 20060108, end: 20060117
  2. PYRIDIUM (PHENAZOPYRIDINE HYDROCHLORIDE) [Suspect]
     Indication: PAIN
     Dates: start: 20060118, end: 20060101
  3. COPAXONE [Concomitant]

REACTIONS (7)
  - CYSTITIS [None]
  - DRUG DOSE OMISSION [None]
  - DRUG EFFECT DECREASED [None]
  - DYSPEPSIA [None]
  - PAIN [None]
  - THERAPY NON-RESPONDER [None]
  - URINARY RETENTION [None]
